FAERS Safety Report 23709761 (Version 1)
Quarter: 2024Q2

REPORT INFORMATION
  Report Type: Report from Study
  Country: US (occurrence: US)
  Receive Date: 20240404
  Receipt Date: 20240404
  Transmission Date: 20240716
  Serious: Yes (Other)
  Sender: FDA-Public Use
  Company Number: US-ABBVIE-5702973

PATIENT
  Sex: Female

DRUGS (1)
  1. SKYRIZI [Suspect]
     Active Substance: RISANKIZUMAB-RZAA
     Indication: Psoriasis
     Route: 058
     Dates: start: 20220921

REACTIONS (4)
  - Rehabilitation therapy [Recovering/Resolving]
  - Upper respiratory tract infection [Recovering/Resolving]
  - Renal failure [Recovering/Resolving]
  - Cardiac failure congestive [Recovering/Resolving]
